FAERS Safety Report 8590891-5 (Version None)
Quarter: 2012Q3

REPORT INFORMATION
  Report Type: 
  Country: None (occurrence: None)
  Receive Date: 20120813
  Receipt Date: 20120806
  Transmission Date: 20120928
  Serious: Yes (Hospitalization, Disabling, Other)
  Sender: FDA-Public Use
  Company Number: US-009507513-1205USA04576

PATIENT

DRUGS (9)
  1. SYNTHROID [Concomitant]
     Indication: HYPOTHYROIDISM
     Dosage: UNK
     Dates: start: 19900101
  2. LORAZEPAM [Concomitant]
     Indication: ANXIETY
     Dosage: UNK
     Dates: start: 19970101
  3. NORTRIPTYLINE [Concomitant]
     Indication: DEPRESSION
     Dosage: UNK
     Dates: start: 19950101
  4. ALENDRONATE SODIUM [Suspect]
     Indication: OSTEOPENIA
     Dosage: 70 MG, UNK
     Dates: start: 20080219, end: 20100315
  5. FOSAMAX [Suspect]
     Indication: OSTEOPOROSIS
     Dosage: 70 MG, QW
     Route: 048
     Dates: start: 20060706, end: 20080201
  6. FOSAMAX [Suspect]
     Indication: OSTEOPENIA
  7. ALENDRONATE SODIUM [Suspect]
     Indication: OSTEOPOROSIS
  8. ATENOLOL [Concomitant]
     Indication: HYPERTENSION
     Dosage: UNK
     Dates: start: 19970101
  9. METFORMIN HYDROCHLORIDE [Concomitant]
     Indication: TYPE 2 DIABETES MELLITUS
     Dosage: UNK
     Dates: start: 20030101, end: 20070101

REACTIONS (29)
  - BRADYCARDIA [None]
  - CAROTID ARTERY STENOSIS [None]
  - INFECTION [None]
  - ROAD TRAFFIC ACCIDENT [None]
  - PRESYNCOPE [None]
  - DYSPEPSIA [None]
  - HYPERSENSITIVITY [None]
  - BONE DISORDER [None]
  - CHEST PAIN [None]
  - CONVULSION [None]
  - VERTIGO [None]
  - LIVER FUNCTION TEST ABNORMAL [None]
  - DYSPHAGIA [None]
  - HYPOTENSION [None]
  - STRESS FRACTURE [None]
  - LOW TURNOVER OSTEOPATHY [None]
  - INSOMNIA [None]
  - CHRONIC OBSTRUCTIVE PULMONARY DISEASE [None]
  - DRUG HYPERSENSITIVITY [None]
  - FEMUR FRACTURE [None]
  - OSTEOPOROSIS [None]
  - PERIPHERAL ARTERIAL OCCLUSIVE DISEASE [None]
  - CORONARY ARTERY DISEASE [None]
  - GALLBLADDER DISORDER [None]
  - CEREBRAL ATROPHY [None]
  - HYPERKALAEMIA [None]
  - IMPAIRED HEALING [None]
  - CONGENITAL CYSTIC KIDNEY DISEASE [None]
  - SKIN DISORDER [None]
